FAERS Safety Report 22112151 (Version 7)
Quarter: 2023Q2

REPORT INFORMATION
  Report Type: Spontaneous
  Country: US (occurrence: US)
  Receive Date: 20230318
  Receipt Date: 20230616
  Transmission Date: 20230721
  Serious: Yes (Hospitalization, Other)
  Sender: FDA-Public Use
  Company Number: US-UNITED THERAPEUTICS-UNT-2023-007311

PATIENT
  Age: 55 Year
  Sex: Male

DRUGS (10)
  1. REMODULIN [Suspect]
     Active Substance: TREPROSTINIL
     Indication: Pulmonary arterial hypertension
     Dosage: UNK, CONTINUING
     Route: 041
  2. REMODULIN [Suspect]
     Active Substance: TREPROSTINIL
     Indication: Pulmonary arterial hypertension
     Dosage: 0.01149 ?G/KG, CONTINUING
     Route: 058
     Dates: start: 202303, end: 202303
  3. REMODULIN [Suspect]
     Active Substance: TREPROSTINIL
     Dosage: 0.01281 ?G/KG, CONTINUING
     Route: 058
     Dates: start: 202303
  4. REMODULIN [Suspect]
     Active Substance: TREPROSTINIL
     Dosage: 0.01414 ?G/KG, CONTINUING
     Route: 058
  5. REMODULIN [Suspect]
     Active Substance: TREPROSTINIL
     Dosage: UNK (AT A RATE OF 32 UL/HR), CONTINUING
     Route: 058
     Dates: start: 20230401, end: 202304
  6. REMODULIN [Suspect]
     Active Substance: TREPROSTINIL
     Dosage: 0.01546 ?G/KG, CONTINUING
     Route: 058
     Dates: start: 202304, end: 202304
  7. REMODULIN [Suspect]
     Active Substance: TREPROSTINIL
     Dosage: 0.01680 ?G/KG, CONTINUING
     Route: 058
     Dates: start: 202304
  8. REMODULIN [Suspect]
     Active Substance: TREPROSTINIL
     Dosage: 0.01944 ?G/KG, CONTINUING
     Route: 058
  9. REMODULIN [Suspect]
     Active Substance: TREPROSTINIL
     Dosage: 0.02077 ?G/KG, CONTINUING
     Route: 058
  10. REMODULIN [Suspect]
     Active Substance: TREPROSTINIL
     Dosage: UNK, CONTINUING
     Route: 058
     Dates: start: 202303

REACTIONS (19)
  - Pneumonia [Recovered/Resolved]
  - Oxygen saturation decreased [Unknown]
  - Flushing [Recovered/Resolved]
  - Infusion site pruritus [Recovered/Resolved]
  - Infusion site irritation [Recovered/Resolved]
  - Infusion site reaction [Recovered/Resolved]
  - Drug hypersensitivity [Recovered/Resolved]
  - Drug intolerance [Recovered/Resolved]
  - Catheter site pain [Recovered/Resolved]
  - Catheter site erythema [Recovered/Resolved]
  - Illness [Unknown]
  - Device use error [Recovered/Resolved]
  - Device wireless communication issue [Recovered/Resolved]
  - Infusion site infection [Unknown]
  - Headache [Unknown]
  - Infusion site urticaria [Unknown]
  - Infusion site discomfort [Unknown]
  - Device maintenance issue [Unknown]
  - Infusion site swelling [Unknown]

NARRATIVE: CASE EVENT DATE: 20230301
